FAERS Safety Report 4381732-0 (Version None)
Quarter: 2004Q2

REPORT INFORMATION
  Report Type: 
  Country: None (occurrence: None)
  Receive Date: 20040603
  Receipt Date: 20030813
  Transmission Date: 20050107
  Serious: Yes (Other)
  Sender: FDA-Public Use
  Company Number: 200316766US

PATIENT
  Age: 51 Year
  Sex: Female

DRUGS (1)
  1. LOVENOX [Suspect]
     Dosage: 40 MG ONCE SC
     Route: 058

REACTIONS (6)
  - ABDOMINAL DISTENSION [None]
  - ABDOMINAL HAEMATOMA [None]
  - PO2 DECREASED [None]
  - PULMONARY EMBOLISM [None]
  - TACHYCARDIA [None]
  - THROMBOSIS [None]
